FAERS Safety Report 21418408 (Version 1)
Quarter: 2022Q4

REPORT INFORMATION
  Report Type: Report from Study
  Country: US (occurrence: US)
  Receive Date: 20221006
  Receipt Date: 20221006
  Transmission Date: 20230112
  Serious: No
  Sender: FDA-Public Use
  Company Number: US-ABBVIE-4141429

PATIENT
  Age: 67 Year
  Sex: Female

DRUGS (2)
  1. HUMIRA [Suspect]
     Active Substance: ADALIMUMAB
     Indication: Ankylosing spondylitis
     Route: 018
  2. Moderna [Concomitant]
     Indication: COVID-19 immunisation

REACTIONS (2)
  - SARS-CoV-2 test positive [Unknown]
  - Illness [Unknown]

NARRATIVE: CASE EVENT DATE: 20221002
